FAERS Safety Report 7449062-8 (Version None)
Quarter: 2011Q2

REPORT INFORMATION
  Report Type: 
  Country: None (occurrence: None)
  Receive Date: 20110501
  Receipt Date: 20110426
  Transmission Date: 20111010
  Serious: Yes (Other)
  Sender: FDA-Public Use
  Company Number: DK-BRISTOL-MYERS SQUIBB COMPANY-15704240

PATIENT
  Age: 49 Year
  Sex: Female

DRUGS (2)
  1. ABILIFY [Suspect]
     Indication: PSYCHIATRIC SYMPTOM
     Dosage: TABS  1DF:5-10MG
     Dates: start: 20100521, end: 20101001
  2. VENLAFAXINE HCL [Concomitant]
     Indication: DEPRESSIVE SYMPTOM
     Dosage: 225 MG (75+150 MG), 1 X 1 DEPOT
     Dates: start: 20100222

REACTIONS (3)
  - LUPUS-LIKE SYNDROME [None]
  - FATIGUE [None]
  - RESTLESSNESS [None]
